FAERS Safety Report 20809487 (Version 1)
Quarter: 2022Q2

REPORT INFORMATION
  Report Type: Spontaneous
  Country: US (occurrence: None)
  Receive Date: 20220510
  Receipt Date: 20220510
  Transmission Date: 20220721
  Serious: Yes (Hospitalization)
  Sender: FDA-Public Use
  Company Number: None

PATIENT
  Sex: Female
  Weight: 14.9 kg

DRUGS (4)
  1. CARBOPLATIN [Suspect]
     Active Substance: CARBOPLATIN
  2. ETOPSIDE (VP-16) [Concomitant]
  3. G-CSF (filgrastim, Amgen) [Concomitant]
  4. MELPHALAN [Concomitant]
     Active Substance: MELPHALAN

REACTIONS (2)
  - Venoocclusive liver disease [None]
  - Respiratory disorder [None]

NARRATIVE: CASE EVENT DATE: 20220413
